FAERS Safety Report 4354850-0 (Version None)
Quarter: 2004Q2

REPORT INFORMATION
  Report Type: 
  Country: None (occurrence: None)
  Receive Date: 20040507
  Receipt Date: 20040428
  Transmission Date: 20050107
  Serious: Yes (Hospitalization)
  Sender: FDA-Public Use
  Company Number: FR-GLAXOSMITHKLINE-B0331416A

PATIENT
  Age: 4 Day
  Sex: Female

DRUGS (3)
  1. RETROVIR [Suspect]
     Indication: ANTIVIRAL PROPHYLAXIS
     Route: 048
  2. COMBIVIR [Suspect]
     Indication: HIV INFECTION
     Dates: start: 20030715
  3. VIRACEPT [Suspect]
     Indication: HIV INFECTION
     Dates: start: 20030715

REACTIONS (3)
  - ANAEMIA [None]
  - DRUG EXPOSURE DURING PREGNANCY [None]
  - FAECES PALE [None]
